FAERS Safety Report 14176997 (Version 1)
Quarter: 2017Q4

REPORT INFORMATION
  Report Type: Spontaneous
  Country: IL (occurrence: IL)
  Receive Date: 20171110
  Receipt Date: 20171110
  Transmission Date: 20180321
  Serious: Yes (Hospitalization, Other)
  Sender: FDA-Public Use
  Company Number: IL-ASTRAZENECA-2017SF14054

PATIENT
  Age: 59 Year
  Sex: Female
  Weight: 69 kg

DRUGS (1)
  1. FORXIGA [Suspect]
     Active Substance: DAPAGLIFLOZIN
     Indication: TYPE 2 DIABETES MELLITUS
     Route: 048
     Dates: start: 201512, end: 20170721

REACTIONS (6)
  - Vomiting [Unknown]
  - Lactic acidosis [Unknown]
  - Abdominal pain upper [Unknown]
  - Diabetic ketoacidosis [Recovered/Resolved]
  - Oropharyngeal pain [Unknown]
  - Infection [Unknown]

NARRATIVE: CASE EVENT DATE: 20170720
